FAERS Safety Report 9493835 (Version 1)
Quarter: 2013Q3

REPORT INFORMATION
  Report Type: Spontaneous
  Country: IE (occurrence: IE)
  Receive Date: 20130902
  Receipt Date: 20130902
  Transmission Date: 20140515
  Serious: Yes (Other)
  Sender: FDA-Public Use
  Company Number: IE-009507513-1308IRL013516

PATIENT
  Sex: 0

DRUGS (1)
  1. INEGY [Suspect]
     Route: 048

REACTIONS (3)
  - Surgery [Unknown]
  - Wrong technique in drug usage process [Unknown]
  - Incorrect route of drug administration [Unknown]
